FAERS Safety Report 15192043 (Version 1)
Quarter: 2018Q3

REPORT INFORMATION
  Report Type: Spontaneous
  Country: FR (occurrence: FR)
  Receive Date: 20180724
  Receipt Date: 20180724
  Transmission Date: 20181010
  Serious: Yes (Death)
  Sender: FDA-Public Use
  Company Number: FR-PFIZER INC-2018263581

PATIENT
  Age: 44 Year
  Sex: Male

DRUGS (2)
  1. FLUCONAZOLE. [Suspect]
     Active Substance: FLUCONAZOLE
     Indication: FUNGAEMIA
     Dosage: 800 MG, UNK
     Route: 048
     Dates: start: 20180427, end: 20180502
  2. TIXTAR [Suspect]
     Active Substance: RIFAXIMIN
     Dosage: UNK
     Route: 048
     Dates: start: 20180424, end: 20180502

REACTIONS (4)
  - Hepatic function abnormal [Recovered/Resolved]
  - Death [Fatal]
  - Overdose [Recovered/Resolved]
  - Gamma-glutamyltransferase increased [Recovered/Resolved]

NARRATIVE: CASE EVENT DATE: 20180501
